FAERS Safety Report 8169371-7 (Version None)
Quarter: 2012Q1

REPORT INFORMATION
  Report Type: 
  Country: None (occurrence: None)
  Receive Date: 20120222
  Receipt Date: 20120207
  Transmission Date: 20120608
  Serious: Yes (Other)
  Sender: FDA-Public Use
  Company Number: 2012S1000041

PATIENT
  Age: 52 Year
  Sex: Female
  Weight: 61.2356 kg

DRUGS (3)
  1. INOVENT (DELIVERY SYSTEM) [Suspect]
     Indication: ACUTE RESPIRATORY DISTRESS SYNDROME
  2. INOMAX [Suspect]
     Indication: ACUTE RESPIRATORY DISTRESS SYNDROME
     Dosage: 40 PPM, CONT. INH
     Route: 055
     Dates: start: 20120206
  3. DIPRIVAN [Concomitant]

REACTIONS (2)
  - DEVICE ISSUE [None]
  - OXYGEN SATURATION DECREASED [None]
